FAERS Safety Report 22869784 (Version 5)
Quarter: 2025Q1

REPORT INFORMATION
  Report Type: Spontaneous
  Country: CA (occurrence: CA)
  Receive Date: 20230826
  Receipt Date: 20250130
  Transmission Date: 20250408
  Serious: Yes (Other)
  Sender: CELLTRION
  Company Number: CA-CELLTRION INC.-2023CA016821

PATIENT

DRUGS (9)
  1. YUFLYMA [Suspect]
     Active Substance: ADALIMUMAB-AATY
     Indication: Rheumatoid arthritis
     Dosage: 40 MG , WEEKS-2 WEEKS , SUBCUTANEOUS
     Route: 058
     Dates: start: 20230427
  2. YUFLYMA [Suspect]
     Active Substance: ADALIMUMAB-AATY
     Dosage: 40 MG , WEEKS-2 WEEKS , SUBCUTANEOUS
     Route: 058
     Dates: start: 20230817
  3. YUFLYMA [Suspect]
     Active Substance: ADALIMUMAB-AATY
     Dosage: 40 MG , 1 EVERY 2 WEEKS
     Route: 058
  4. YUFLYMA [Suspect]
     Active Substance: ADALIMUMAB-AATY
     Dosage: 40 MG , 1 EVERY 2 WEEKS
     Route: 058
  5. METHOTREXATE [Concomitant]
     Active Substance: METHOTREXATE
     Dosage: 10MG WEEKLY; STARTED 4 YEARS AGO.
  6. HYDROXYCHLOROQUINE [Concomitant]
     Active Substance: HYDROXYCHLOROQUINE
  7. SULFASALAZINE [Concomitant]
     Active Substance: SULFASALAZINE
  8. FOLIC ACID [Concomitant]
     Active Substance: FOLIC ACID
  9. DICLOFENAC [Concomitant]
     Active Substance: DICLOFENAC

REACTIONS (2)
  - Rheumatoid arthritis [Recovering/Resolving]
  - Therapy interrupted [Recovering/Resolving]

NARRATIVE: CASE EVENT DATE: 20230821
